FAERS Safety Report 9058582 (Version 3)
Quarter: 2013Q4

REPORT INFORMATION
  Report Type: Spontaneous
  Country: AR (occurrence: AR)
  Receive Date: 20130211
  Receipt Date: 20131111
  Transmission Date: 20140711
  Serious: Yes (Hospitalization, Other)
  Sender: FDA-Public Use
  Company Number: PHHY2013AR012859

PATIENT
  Sex: Male

DRUGS (1)
  1. TASIGNA [Suspect]
     Indication: CHRONIC MYELOID LEUKAEMIA
     Dosage: 600 MG, QD
     Route: 048
     Dates: start: 200802

REACTIONS (5)
  - Myocardial infarction [Recovering/Resolving]
  - Diabetes mellitus [Recovering/Resolving]
  - Chest pain [Recovering/Resolving]
  - Depression [Unknown]
  - Fatigue [Recovering/Resolving]
